FAERS Safety Report 13754448 (Version 1)
Quarter: 2017Q3

REPORT INFORMATION
  Report Type: Spontaneous
  Country: GB (occurrence: GB)
  Receive Date: 20170714
  Receipt Date: 20170714
  Transmission Date: 20171127
  Serious: Yes (Other)
  Sender: FDA-Public Use
  Company Number: GB-BAXTER-2017BAX027433

PATIENT
  Sex: Male

DRUGS (5)
  1. DEXAMETHASONE. [Suspect]
     Active Substance: DEXAMETHASONE
     Dosage: DOSAGE FORM: UNSPECIFIED
     Route: 065
     Dates: end: 201603
  2. DEXAMETHASONE. [Suspect]
     Active Substance: DEXAMETHASONE
     Indication: PLASMA CELL MYELOMA
     Dosage: TOTAL 5 CYCLES
     Route: 065
     Dates: end: 201507
  3. VELCADE [Suspect]
     Active Substance: BORTEZOMIB
     Indication: PLASMA CELL MYELOMA
     Dosage: DOSAGE FORM: LYOPHILIZED POWDER
     Route: 065
     Dates: end: 201603
  4. LENALIDOMIDE [Suspect]
     Active Substance: LENALIDOMIDE
     Indication: PLASMA CELL MYELOMA
     Dosage: TOTAL 5 CYCLES
     Route: 065
     Dates: end: 201507
  5. CYCLOPHOSPHAMIDE INJECTION 1G [Suspect]
     Active Substance: CYCLOPHOSPHAMIDE
     Indication: PLASMA CELL MYELOMA
     Dosage: DOSAGE FORM: UNSPECIFIED
     Route: 065
     Dates: end: 201603

REACTIONS (4)
  - Drug effect decreased [Unknown]
  - Neuropathy peripheral [Recovering/Resolving]
  - Intestinal adenocarcinoma [Unknown]
  - Anaemia [Unknown]
